FAERS Safety Report 19064266 (Version 6)
Quarter: 2023Q4

REPORT INFORMATION
  Report Type: Report from Study
  Country: US (occurrence: US)
  Receive Date: 20210326
  Receipt Date: 20231102
  Transmission Date: 20240110
  Serious: Yes (Hospitalization, Other)
  Sender: FDA-Public Use
  Company Number: US-SHIRE-US202032419

PATIENT
  Age: 67 Year
  Sex: Female

DRUGS (2)
  1. HUMAN IMMUNOGLOBULIN G [Suspect]
     Active Substance: HUMAN IMMUNOGLOBULIN G
     Indication: Immunodeficiency common variable
     Dosage: 24 GRAM, 1/WEEK
     Route: 065
  2. HUMAN IMMUNOGLOBULIN G [Suspect]
     Active Substance: HUMAN IMMUNOGLOBULIN G
     Indication: Primary immunodeficiency syndrome

REACTIONS (13)
  - Cystitis klebsiella [Unknown]
  - Incision site cellulitis [Unknown]
  - Drug hypersensitivity [Unknown]
  - Pneumonia [Unknown]
  - Allergy to immunoglobulin therapy [Unknown]
  - Blood pressure decreased [Unknown]
  - Renal impairment [Unknown]
  - Diverticulitis [Unknown]
  - Urinary tract infection [Unknown]
  - Urticaria [Unknown]
  - Pain [Unknown]
  - Back pain [Unknown]
  - Weight decreased [Unknown]

NARRATIVE: CASE EVENT DATE: 20210126
